FAERS Safety Report 6106191-9 (Version None)
Quarter: 2009Q1

REPORT INFORMATION
  Report Type: 
  Country: None (occurrence: None)
  Receive Date: 20090306
  Receipt Date: 20090305
  Transmission Date: 20090719
  Serious: Yes (Disabling, Congenital Anomaly)
  Sender: FDA-Public Use
  Company Number: US-EISAI MEDICAL RESEARCH-E2090-00677-SOL-US

PATIENT
  Age: 38 Week
  Sex: Female

DRUGS (7)
  1. ZONEGRAN [Suspect]
     Indication: DRUG EXPOSURE DURING PREGNANCY
     Route: 064
     Dates: start: 20070508, end: 20070917
  2. ZONEGRAN [Suspect]
     Route: 064
     Dates: start: 20070918, end: 20080130
  3. DEPAKOTE [Concomitant]
     Indication: DRUG EXPOSURE DURING PREGNANCY
     Route: 064
     Dates: start: 20070508, end: 20070522
  4. DEPAKOTE [Concomitant]
     Route: 064
     Dates: start: 20070523, end: 20070815
  5. DEPAKOTE [Concomitant]
     Route: 064
     Dates: start: 20070816, end: 20070901
  6. DEPAKOTE [Concomitant]
     Route: 064
     Dates: start: 20070901, end: 20071023
  7. DEPAKOTE [Concomitant]
     Route: 064
     Dates: start: 20071024, end: 20080130

REACTIONS (3)
  - DRUG EXPOSURE DURING PREGNANCY [None]
  - PATENT DUCTUS ARTERIOSUS [None]
  - SPINA BIFIDA [None]
